FAERS Safety Report 21113555 (Version 3)
Quarter: 2022Q3

REPORT INFORMATION
  Report Type: Report from Study
  Country: CA (occurrence: CA)
  Receive Date: 20220721
  Receipt Date: 20220803
  Transmission Date: 20221027
  Serious: Yes (Hospitalization, Other)
  Sender: FDA-Public Use
  Company Number: CA-JNJFOC-20220720911

PATIENT
  Age: 62 Year
  Sex: Female

DRUGS (1)
  1. DARZALEX [Suspect]
     Active Substance: DARATUMUMAB
     Indication: Primary amyloidosis
     Route: 065
     Dates: start: 20220707

REACTIONS (5)
  - Diarrhoea [Unknown]
  - Dehydration [Unknown]
  - Hallucination [Unknown]
  - Eating disorder [Unknown]
  - Inappropriate schedule of product administration [Unknown]
